FAERS Safety Report 21838200 (Version 1)
Quarter: 2023Q1

REPORT INFORMATION
  Report Type: Spontaneous
  Country: US (occurrence: None)
  Receive Date: 20230106
  Receipt Date: 20230106
  Transmission Date: 20230418
  Serious: Yes (Hospitalization)
  Sender: FDA-Public Use
  Company Number: None

PATIENT
  Age: 68 Year
  Sex: Female

DRUGS (15)
  1. AMBRISENTAN [Suspect]
     Active Substance: AMBRISENTAN
     Indication: Pulmonary hypertension
     Dosage: FREQUENCY : DAILY;?
     Route: 048
     Dates: start: 20160421
  2. SILDENAFIL [Concomitant]
  3. SUCRALFATE [Concomitant]
  4. OXYCODONE [Concomitant]
  5. CELLCEPT [Concomitant]
     Active Substance: MYCOPHENOLATE MOFETIL
  6. NORTRIPTYLINE [Concomitant]
     Active Substance: NORTRIPTYLINE
  7. LEVOTHYROXINE [Concomitant]
  8. PANTOPRAZOLE [Concomitant]
  9. OXYGEN INTRANSAL [Concomitant]
  10. MELATONIN [Concomitant]
     Active Substance: MELATONIN
  11. ALBUTEROL SULFATE [Concomitant]
     Active Substance: ALBUTEROL SULFATE
  12. FUROSEMIDE [Concomitant]
  13. BENZONATATE [Concomitant]
  14. FERROUS SULFATE [Concomitant]
  15. MU[ORPCOM TP[ POMT [Concomitant]

REACTIONS (1)
  - Iron deficiency anaemia [None]

NARRATIVE: CASE EVENT DATE: 20221220
